FAERS Safety Report 25267419 (Version 1)
Quarter: 2025Q2

REPORT INFORMATION
  Report Type: Spontaneous
  Country: US (occurrence: US)
  Receive Date: 20250505
  Receipt Date: 20250505
  Transmission Date: 20250716
  Serious: Yes (Hospitalization, Other)
  Sender: ZYDUS PHARM
  Company Number: US-CADILA HEALTHCARE LIMITED-US-ZYDUS-122705

PATIENT

DRUGS (1)
  1. BUPROPION [Suspect]
     Active Substance: BUPROPION
     Indication: Depression
     Route: 065

REACTIONS (4)
  - Acute respiratory distress syndrome [Recovering/Resolving]
  - Pulmonary oedema [Recovering/Resolving]
  - Cytokine storm [Recovering/Resolving]
  - Intentional overdose [Unknown]
